FAERS Safety Report 9646049 (Version 1)
Quarter: 2013Q4

REPORT INFORMATION
  Report Type: Spontaneous
  Country: US (occurrence: US)
  Receive Date: 20131025
  Receipt Date: 20131025
  Transmission Date: 20140711
  Serious: Yes (Other)
  Sender: FDA-Public Use
  Company Number: US-BAYER-2013-129526

PATIENT
  Age: 50 Year
  Sex: Female
  Weight: 99.77 kg

DRUGS (13)
  1. ALKA-SELTZER FRUIT CHEWS [Suspect]
     Dosage: UNK UNK, PRN
     Route: 048
     Dates: start: 201304, end: 20131023
  2. ATENOLOL [Concomitant]
  3. EQUATE ASPIRIN [Concomitant]
  4. GEODON [Concomitant]
  5. LAMOTRIGINE [Concomitant]
  6. LAMOTRIGINE [Concomitant]
  7. IRON W/VITAMINS NOS [Concomitant]
  8. VITAMIN D3 [Concomitant]
  9. METFORMIN [Concomitant]
  10. LOVASTATIN [Concomitant]
  11. LOVAZA [Concomitant]
  12. FENOFIBRATE [Concomitant]
  13. LINAGLIPTIN [Concomitant]

REACTIONS (1)
  - Blood glucose increased [Unknown]
